FAERS Safety Report 21044373 (Version 1)
Quarter: 2022Q3

REPORT INFORMATION
  Report Type: Spontaneous
  Country: US (occurrence: None)
  Receive Date: 20220704
  Receipt Date: 20220704
  Transmission Date: 20221027
  Serious: Yes (Other)
  Sender: FDA-Public Use
  Company Number: None

PATIENT
  Age: 36 Year
  Sex: Female
  Weight: 74.25 kg

DRUGS (7)
  1. AJOVY [Suspect]
     Active Substance: FREMANEZUMAB-VFRM
     Indication: Vestibular migraine
     Dosage: FREQUENCY : MONTHLY;?OTHER ROUTE : AUTOINJECTOR;?
     Route: 050
     Dates: start: 20110503, end: 20220615
  2. KLONOPIN [Concomitant]
     Active Substance: CLONAZEPAM
  3. MAGNESIUM [Concomitant]
     Active Substance: MAGNESIUM
  4. Flo PMS supplements [Concomitant]
  5. ZYRTEC [Concomitant]
     Active Substance: CETIRIZINE HYDROCHLORIDE
  6. PROBIOTICS NOS [Concomitant]
     Active Substance: PROBIOTICS NOS
  7. UNSPECIFIED INGREDIENT [Concomitant]
     Active Substance: UNSPECIFIED INGREDIENT

REACTIONS (13)
  - Injection site erythema [None]
  - Injection site rash [None]
  - Injection site discolouration [None]
  - Nausea [None]
  - Tremor [None]
  - Syncope [None]
  - Injection site warmth [None]
  - Injection site pruritus [None]
  - Injection site nodule [None]
  - Injection site reaction [None]
  - Anxiety [None]
  - Depression [None]
  - Therapy non-responder [None]

NARRATIVE: CASE EVENT DATE: 20220518
